FAERS Safety Report 7216270-0 (Version None)
Quarter: 2011Q1

REPORT INFORMATION
  Report Type: 
  Country: None (occurrence: None)
  Receive Date: 20110107
  Receipt Date: 20101215
  Transmission Date: 20110831
  Serious: No
  Sender: FDA-Public Use
  Company Number: US-B.I. PHARMACEUTICALS,INC./RIDGEFIELD-2010-BP-14598BP

PATIENT
  Sex: Female

DRUGS (6)
  1. SIMVASTATIN [Concomitant]
     Dosage: 100 MG
     Route: 048
  2. SIMVASTATIN [Concomitant]
     Dosage: 20 MG
     Route: 048
     Dates: start: 20080101
  3. PRADAXA [Suspect]
     Indication: ANTICOAGULANT THERAPY
     Dosage: 300 MG
     Route: 048
     Dates: start: 20101130, end: 20101214
  4. FUROSEMIDE [Concomitant]
     Dosage: 80 MG
     Route: 048
     Dates: start: 20080101
  5. SOTALOL [Concomitant]
     Dosage: 160 MG
     Route: 048
     Dates: start: 20091201
  6. POTASSIUM [Concomitant]
     Dosage: 40 MG
     Route: 048
     Dates: start: 20080101

REACTIONS (2)
  - EYE HAEMORRHAGE [None]
  - OCULAR HYPERAEMIA [None]
